FAERS Safety Report 13664963 (Version 2)
Quarter: 2017Q3

REPORT INFORMATION
  Report Type: Spontaneous
  Country: US (occurrence: US)
  Receive Date: 20170619
  Receipt Date: 20170726
  Transmission Date: 20171127
  Serious: No
  Sender: FDA-Public Use
  Company Number: PHEH2017US017371

PATIENT
  Age: 54 Year
  Sex: Female

DRUGS (1)
  1. ESTRADIOL. [Suspect]
     Active Substance: ESTRADIOL
     Indication: HORMONE REPLACEMENT THERAPY
     Dosage: 1 DF, Q3H
     Route: 065

REACTIONS (4)
  - Drug ineffective [Recovered/Resolved]
  - Hyperhidrosis [Recovered/Resolved]
  - Product use in unapproved indication [Unknown]
  - Hot flush [Recovered/Resolved]

NARRATIVE: CASE EVENT DATE: 20170604
